FAERS Safety Report 5533305-1 (Version None)
Quarter: 2007Q4

REPORT INFORMATION
  Report Type: 
  Country: None (occurrence: None)
  Receive Date: 20071130
  Receipt Date: 20071130
  Transmission Date: 20080405
  Serious: Yes (Life-Threatening)
  Sender: FDA-Public Use
  Company Number: None

PATIENT
  Age: 47 Year
  Sex: Female
  Weight: 52.1637 kg

DRUGS (5)
  1. AVELOX [Suspect]
     Indication: PYREXIA
     Dates: start: 20070515, end: 20070515
  2. CIPRO [Concomitant]
  3. LEQUQUIN [Concomitant]
  4. FACTIVE [Concomitant]
  5. AVELOX [Concomitant]

REACTIONS (7)
  - BURNING SENSATION [None]
  - FALL [None]
  - IMPAIRED DRIVING ABILITY [None]
  - LOSS OF CONSCIOUSNESS [None]
  - OPEN WOUND [None]
  - POISONING [None]
  - PRURITUS [None]
